FAERS Safety Report 10061704 (Version 1)
Quarter: 2014Q2

REPORT INFORMATION
  Report Type: Spontaneous
  Country: US (occurrence: US)
  Receive Date: 20140407
  Receipt Date: 20140407
  Transmission Date: 20141212
  Serious: No
  Sender: FDA-Public Use
  Company Number: US-TARO-2014P1000098

PATIENT
  Age: 59 Year
  Sex: Male
  Weight: 68.95 kg

DRUGS (2)
  1. FLUOROURACIL TOPICAL CREAM USP 5% [Suspect]
     Indication: ACTINIC KERATOSIS
     Route: 061
     Dates: start: 20131227
  2. T4 [Concomitant]

REACTIONS (2)
  - Drug effect decreased [Not Recovered/Not Resolved]
  - Product substitution issue [Not Recovered/Not Resolved]
